FAERS Safety Report 8601152-X (Version None)
Quarter: 2012Q3

REPORT INFORMATION
  Report Type: 
  Country: None (occurrence: None)
  Receive Date: 20120817
  Receipt Date: 20120803
  Transmission Date: 20120928
  Serious: Yes (Hospitalization)
  Sender: FDA-Public Use
  Company Number: FR-MYLANLABS-2012S1015902

PATIENT
  Age: 70 Year
  Sex: Male

DRUGS (5)
  1. VANCOMYCIN [Suspect]
     Indication: PRODUCT USED FOR UNKNOWN INDICATION
     Route: 042
     Dates: start: 20120617, end: 20120617
  2. CIPROFLOXACIN HYDROCHLORIDE [Suspect]
     Indication: SEPTIC SHOCK
     Route: 042
     Dates: start: 20120617, end: 20120619
  3. TAZOBACTAM [Suspect]
     Route: 042
     Dates: start: 20120617
  4. RANITIDINE [Suspect]
     Route: 042
     Dates: start: 20120617
  5. FUNGIZONE [Suspect]
     Indication: CANDIDIASIS
     Dates: start: 20120618

REACTIONS (3)
  - CONFUSIONAL STATE [None]
  - AGGRESSION [None]
  - DISORIENTATION [None]
